FAERS Safety Report 4374712-2 (Version None)
Quarter: 2004Q2

REPORT INFORMATION
  Report Type: 
  Country: None (occurrence: None)
  Receive Date: 20040604
  Receipt Date: 20040520
  Transmission Date: 20050107
  Serious: Yes (Other)
  Sender: FDA-Public Use
  Company Number: P2004000002

PATIENT
  Age: 50 Year
  Sex: Male

DRUGS (3)
  1. PLENAXIS [Suspect]
     Indication: PROSTATE CANCER
     Dosage: 100 MG, SINGLE, INTRAMUSCULAR
     Route: 030
     Dates: start: 20040507, end: 20040507
  2. OXYCODONE HCL [Concomitant]
  3. CATAFLAM (DICLOFENAC SODIUM) [Concomitant]

REACTIONS (1)
  - URTICARIA [None]
